FAERS Safety Report 22042070 (Version 2)
Quarter: 2023Q1

REPORT INFORMATION
  Report Type: Report from Study
  Country: CA (occurrence: CA)
  Receive Date: 20230227
  Receipt Date: 20230316
  Transmission Date: 20230418
  Serious: Yes (Other)
  Sender: FDA-Public Use
  Company Number: CA-JNJFOC-20230250491

PATIENT
  Sex: Female

DRUGS (1)
  1. REMICADE [Suspect]
     Active Substance: INFLIXIMAB
     Indication: Crohn^s disease
     Route: 042

REACTIONS (4)
  - Eye infection fungal [Recovering/Resolving]
  - Fungal rhinitis [Recovering/Resolving]
  - Ear infection fungal [Recovering/Resolving]
  - Fungal infection [Recovering/Resolving]
